FAERS Safety Report 18038163 (Version 2)
Quarter: 2020Q4

REPORT INFORMATION
  Report Type: Report from Study
  Country: US (occurrence: US)
  Receive Date: 20200717
  Receipt Date: 20201012
  Transmission Date: 20210113
  Serious: Yes (Other)
  Sender: FDA-Public Use
  Company Number: US-SHIRE-US202013087

PATIENT
  Sex: Female

DRUGS (1)
  1. HUMAN IMMUNOGLOBULIN; HYALURONIDASE [Suspect]
     Active Substance: HUMAN IMMUNOGLOBULIN G\HYALURONIDASE RECOMBINANT HUMAN
     Indication: SELECTIVE IGG SUBCLASS DEFICIENCY
     Dosage: 35 GRAM, EVERY 4 WK
     Route: 065

REACTIONS (16)
  - Weight increased [Unknown]
  - Fatigue [Unknown]
  - Oxygen saturation decreased [Unknown]
  - Ill-defined disorder [Unknown]
  - Lipoma [Unknown]
  - Infusion site pain [Recovered/Resolved]
  - Sensitive skin [Not Recovered/Not Resolved]
  - Pyrexia [Unknown]
  - Oral herpes [Unknown]
  - Sinus disorder [Unknown]
  - Chills [Recovered/Resolved]
  - Nausea [Recovered/Resolved]
  - Night sweats [Unknown]
  - Bronchiectasis [Unknown]
  - Drug effect less than expected [Unknown]
  - Headache [Unknown]
